FAERS Safety Report 4357589-0 (Version None)
Quarter: 2004Q2

REPORT INFORMATION
  Report Type: 
  Country: None (occurrence: None)
  Receive Date: 20040510
  Receipt Date: 20040428
  Transmission Date: 20050107
  Serious: Yes (Death)
  Sender: FDA-Public Use
  Company Number: HQWYE327728MAR03

PATIENT
  Age: 68 Year
  Sex: Male

DRUGS (5)
  1. DIMETAPP [Suspect]
     Indication: NASOPHARYNGITIS
     Dosage: ORAL
     Route: 048
     Dates: start: 19960101, end: 19960119
  2. BC (ACETYLSALICYLIC ACD/CAFFEINE/SALICYLAMIDE, POWDER) [Suspect]
     Indication: COUGH
     Dosage: ORAL
     Route: 048
     Dates: start: 19960101, end: 19960119
  3. DIMETAPP [Suspect]
  4. ROBITUSSIN CF (GUAIFENESIN/DEXTROMETHORPHAN/PHENYLPROPANOLAMINE, SYRUP [Suspect]
     Indication: NASOPHARYNGITIS
     Dosage: ORAL
     Route: 048
     Dates: start: 19960101, end: 19960119
  5. UNKNOWN (UNKNOWN, ) [Suspect]
     Indication: COUGH
     Dosage: ORAL
     Route: 048

REACTIONS (1)
  - CEREBROVASCULAR ACCIDENT [None]
